FAERS Safety Report 13939202 (Version 1)
Quarter: 2017Q3

REPORT INFORMATION
  Report Type: Spontaneous
  Country: US (occurrence: None)
  Receive Date: 20170906
  Receipt Date: 20170906
  Transmission Date: 20171127
  Serious: No
  Sender: FDA-Public Use
  Company Number: None

PATIENT
  Age: 73 Year
  Sex: Male
  Weight: 82 kg

DRUGS (1)
  1. SECUKINUMAB [Suspect]
     Active Substance: SECUKINUMAB
     Indication: PAIN
     Dosage: 150 MG OTHER SQ
     Route: 058
     Dates: start: 20170428, end: 20170627

REACTIONS (4)
  - Malaise [None]
  - Headache [None]
  - Vomiting [None]
  - Nausea [None]

NARRATIVE: CASE EVENT DATE: 20170821
